FAERS Safety Report 23415565 (Version 1)
Quarter: 2024Q1

REPORT INFORMATION
  Report Type: Spontaneous
  Country: US (occurrence: US)
  Receive Date: 20240118
  Receipt Date: 20240118
  Transmission Date: 20240410
  Serious: Yes (Other)
  Sender: FDA-Public Use
  Company Number: US-ORGANON-O2401USA000907

PATIENT
  Age: 22 Year
  Sex: Female
  Weight: 103.4 kg

DRUGS (1)
  1. NEXPLANON [Suspect]
     Active Substance: ETONOGESTREL
     Dosage: 1 IMPLANT, LEFT ARM, EVERY THREE YEARS
     Route: 065
     Dates: start: 201811

REACTIONS (4)
  - Device dislocation [Not Recovered/Not Resolved]
  - Complication associated with device [Not Recovered/Not Resolved]
  - Device issue [Not Recovered/Not Resolved]
  - Implant site fibrosis [Unknown]

NARRATIVE: CASE EVENT DATE: 20211101
